FAERS Safety Report 25943230 (Version 1)
Quarter: 2025Q4

REPORT INFORMATION
  Report Type: Spontaneous
  Country: US (occurrence: None)
  Receive Date: 20251021
  Receipt Date: 20251021
  Transmission Date: 20260117
  Serious: Yes (Hospitalization)
  Sender: FDA-CTU
  Company Number: None

PATIENT
  Age: 72 Year
  Sex: Male
  Weight: 65.2 kg

DRUGS (3)
  1. CISPLATIN [Suspect]
     Active Substance: CISPLATIN
     Indication: Bladder cancer
     Dates: end: 20231010
  2. GEMCITABINE HYDROCHLORIDE [Suspect]
     Active Substance: GEMCITABINE HYDROCHLORIDE
     Dates: end: 20231010
  3. LOSARTAN [Suspect]
     Active Substance: LOSARTAN

REACTIONS (5)
  - Fall [None]
  - Confusional state [None]
  - Head injury [None]
  - Blood sodium decreased [None]
  - Therapy interrupted [None]

NARRATIVE: CASE EVENT DATE: 20231017
